FAERS Safety Report 19437971 (Version 1)
Quarter: 2021Q2

REPORT INFORMATION
  Report Type: Spontaneous
  Country: US (occurrence: US)
  Receive Date: 20210618
  Receipt Date: 20210618
  Transmission Date: 20210717
  Serious: Yes (Other)
  Sender: FDA-Public Use
  Company Number: US-PURDUE-USA-2021-0271035

PATIENT
  Sex: Male

DRUGS (5)
  1. MS CONTIN [Suspect]
     Active Substance: MORPHINE SULFATE
     Indication: FOETAL EXPOSURE DURING PREGNANCY
     Dosage: UNKNOWN
     Route: 064
  2. SUBOXONE [Suspect]
     Active Substance: BUPRENORPHINE HYDROCHLORIDE\NALOXONE HYDROCHLORIDE
     Indication: FOETAL EXPOSURE DURING PREGNANCY
     Dosage: UNKNOWN
     Route: 064
  3. METHADONE [Suspect]
     Active Substance: METHADONE HYDROCHLORIDE
     Indication: FOETAL EXPOSURE DURING PREGNANCY
     Dosage: UNKNOWN
     Route: 064
  4. OXYCODONE HCL CR TABLETS (SIMILAR TO NDA 22?272) [Suspect]
     Active Substance: OXYCODONE HYDROCHLORIDE
     Indication: FOETAL EXPOSURE DURING PREGNANCY
     Dosage: UNKNOWN
     Route: 064
  5. HYDROMORPHONE TABLETS [Suspect]
     Active Substance: HYDROMORPHONE
     Indication: FOETAL EXPOSURE DURING PREGNANCY
     Dosage: UNKNOWN
     Route: 064

REACTIONS (7)
  - Drug withdrawal syndrome neonatal [Unknown]
  - Pain [Unknown]
  - Foetal exposure during pregnancy [Unknown]
  - Emotional distress [Unknown]
  - Developmental delay [Unknown]
  - Overdose [Unknown]
  - Drug dependence [Unknown]
